FAERS Safety Report 17299327 (Version 3)
Quarter: 2020Q2

REPORT INFORMATION
  Report Type: Spontaneous
  Country: None (occurrence: US)
  Receive Date: 20200121
  Receipt Date: 20200401
  Transmission Date: 20200713
  Serious: Yes (Other)
  Sender: FDA-Public Use
  Company Number: US-TEIKOKU PHARMA USA-TPU2020-00021

PATIENT
  Age: 76 Year
  Sex: Female
  Weight: 74.46 kg

DRUGS (8)
  1. ONDANSETRON [Concomitant]
     Active Substance: ONDANSETRON
     Indication: NAUSEA
     Dates: start: 201709
  2. ACYCLOVIR. [Concomitant]
     Active Substance: ACYCLOVIR
     Indication: HERPES VIRUS INFECTION
     Dates: start: 1975
  3. OMEPRAZOLE. [Concomitant]
     Active Substance: OMEPRAZOLE
     Indication: ABDOMINAL DISCOMFORT
     Dates: start: 201709
  4. CBD OINTMENT [Concomitant]
  5. FOLIC ACID. [Concomitant]
     Active Substance: FOLIC ACID
     Indication: VITAMIN SUPPLEMENTATION
     Dates: start: 201709
  6. ALEVE [Concomitant]
     Active Substance: NAPROXEN SODIUM
  7. LIDOCAINE PATCH [Suspect]
     Active Substance: LIDOCAINE
     Indication: ARTHRITIS
     Dosage: TO LEFT SHOULDER AND BOTH FEET
     Route: 061
     Dates: start: 2011
  8. FONTANA [Concomitant]
     Indication: SLEEP DISORDER
     Dates: start: 201901

REACTIONS (5)
  - Drug ineffective for unapproved indication [Unknown]
  - Insurance issue [Not Recovered/Not Resolved]
  - Lymphoma [Unknown]
  - Nasopharyngitis [Recovering/Resolving]
  - Pain [Unknown]

NARRATIVE: CASE EVENT DATE: 201708
